FAERS Safety Report 11536517 (Version 1)
Quarter: 2015Q3

REPORT INFORMATION
  Report Type: Spontaneous
  Country: US (occurrence: US)
  Receive Date: 20150922
  Receipt Date: 20150922
  Transmission Date: 20151125
  Serious: Yes (Other)
  Sender: FDA-Public Use
  Company Number: US-BAYER-2015-427545

PATIENT
  Age: 49 Year
  Sex: Female

DRUGS (1)
  1. MIRENA [Suspect]
     Active Substance: LEVONORGESTREL
     Indication: CONTRACEPTION
     Dosage: 20 MCG/24HR, CONT
     Route: 015
     Dates: start: 201310

REACTIONS (3)
  - Invasive ductal breast carcinoma [None]
  - Metastases to lymph nodes [None]
  - Breast cancer [None]

NARRATIVE: CASE EVENT DATE: 20150317
